FAERS Safety Report 7723526-1 (Version None)
Quarter: 2011Q3

REPORT INFORMATION
  Report Type: 
  Country: None (occurrence: None)
  Receive Date: 20110901
  Receipt Date: 20110822
  Transmission Date: 20111222
  Serious: Yes (Hospitalization)
  Sender: FDA-Public Use
  Company Number: PHHY2011US66046

PATIENT
  Sex: Female

DRUGS (8)
  1. CARVEDILOL [Concomitant]
     Dosage: 125 MG, DAILY
     Route: 048
  2. PLAVIX [Concomitant]
     Dosage: 75 MG, DAILY
     Route: 048
  3. HYDROCODONE BITARTRATE AND ACETAMINOPHEN [Concomitant]
     Dosage: 5 MG, DAILY
     Route: 048
  4. FUROSEMIDE [Concomitant]
     Dosage: 20 MG, DAILY
     Route: 048
  5. TASIGNA [Suspect]
     Indication: CHRONIC MYELOID LEUKAEMIA
     Dosage: 400 MG, BID
     Route: 048
     Dates: start: 20110429, end: 20110717
  6. LEVOTHYROXINE SODIUM [Concomitant]
     Dosage: 0.175 MG,DAILY
     Route: 048
  7. SERTRALINE HYDROCHLORIDE [Concomitant]
     Dosage: 100 MG, DAILY
     Route: 048
  8. LISINOPRIL [Concomitant]
     Dosage: 40 MG, DAILY
     Route: 048

REACTIONS (7)
  - CEREBROVASCULAR ACCIDENT [None]
  - VOMITING [None]
  - DIARRHOEA [None]
  - DYSARTHRIA [None]
  - NAUSEA [None]
  - STAPHYLOCOCCAL INFECTION [None]
  - CHILLS [None]
